FAERS Safety Report 16177491 (Version 1)
Quarter: 2019Q2

REPORT INFORMATION
  Report Type: Spontaneous
  Country: US (occurrence: US)
  Receive Date: 20190410
  Receipt Date: 20190410
  Transmission Date: 20190711
  Serious: Yes (Other)
  Sender: FDA-Public Use
  Company Number: US-TORRENT-00007928

PATIENT
  Age: 63 Year
  Sex: Male

DRUGS (4)
  1. CARBAMAZEPINE. [Suspect]
     Active Substance: CARBAMAZEPINE
     Indication: BIPOLAR I DISORDER
  2. NEFAZODONE [Concomitant]
     Active Substance: NEFAZODONE
     Indication: BIPOLAR I DISORDER
     Dosage: UNKNOWN
  3. LAMOTRIGINE. [Interacting]
     Active Substance: LAMOTRIGINE
     Indication: BIPOLAR I DISORDER
  4. CLONAZEPAM. [Concomitant]
     Active Substance: CLONAZEPAM
     Indication: RESTLESS LEGS SYNDROME
     Dosage: UNKNOWN

REACTIONS (8)
  - Drug interaction [Unknown]
  - Rash [Recovered/Resolved]
  - Dizziness [Unknown]
  - Therapy cessation [Unknown]
  - Sedation [Unknown]
  - Balance disorder [Unknown]
  - Drug level increased [Unknown]
  - Off label use [Unknown]
